FAERS Safety Report 13159124 (Version 2)
Quarter: 2017Q1

REPORT INFORMATION
  Report Type: Report from Study
  Country: BR (occurrence: BR)
  Receive Date: 20170127
  Receipt Date: 20170217
  Transmission Date: 20170428
  Serious: Yes (Other)
  Sender: FDA-Public Use
  Company Number: PHHY2016BR172024

PATIENT
  Age: 40 Year
  Sex: Female
  Weight: 55 kg

DRUGS (5)
  1. GILENYA [Suspect]
     Active Substance: FINGOLIMOD HYDROCHLORIDE
     Indication: MULTIPLE SCLEROSIS
     Dosage: 0.5 MG, QD
     Route: 048
     Dates: start: 201203
  2. SANDOMIGRAN [Concomitant]
     Active Substance: PIZOTYLINE
     Indication: HEADACHE
     Dosage: UNK
     Route: 065
  3. TORSILAX [Concomitant]
     Active Substance: ACETAMINOPHEN\CAFFEINE\CARISOPRODOL\DICLOFENAC
     Indication: HEADACHE
     Dosage: UNK
     Route: 065
  4. NARAMIG [Concomitant]
     Active Substance: NARATRIPTAN HYDROCHLORIDE
     Indication: PRODUCT USED FOR UNKNOWN INDICATION
     Dosage: UNK
     Route: 065
  5. DICLIN [Concomitant]
     Indication: OVARIAN CYST
     Dosage: UNK
     Route: 065

REACTIONS (7)
  - Diarrhoea [Recovering/Resolving]
  - Headache [Not Recovered/Not Resolved]
  - Haemangioma of liver [Not Recovered/Not Resolved]
  - Eating disorder [Unknown]
  - Malaise [Unknown]
  - Rash macular [Unknown]
  - Concomitant disease aggravated [Unknown]

NARRATIVE: CASE EVENT DATE: 2014
